FAERS Safety Report 4677505-1 (Version None)
Quarter: 2005Q2

REPORT INFORMATION
  Report Type: 
  Country: None (occurrence: None)
  Receive Date: 20050531
  Receipt Date: 20050520
  Transmission Date: 20051028
  Serious: Yes (Hospitalization)
  Sender: FDA-Public Use
  Company Number: PHHO2005PR08044

PATIENT
  Age: 79 Year
  Sex: Female
  Weight: 66 kg

DRUGS (10)
  1. BENAZEPRIL HYDROCHLORIDE [Suspect]
     Indication: ALBUMINURIA
     Dosage: UNKNOWN
     Dates: start: 20050401, end: 20050426
  2. LISINOPRIL [Concomitant]
  3. TORSEMIDE [Concomitant]
  4. ANCOVERT [Concomitant]
  5. PRANDIN [Concomitant]
  6. MIXTARD HUMAN 70/30 [Concomitant]
  7. ATORVASTATIN [Concomitant]
  8. LOSARTAN POTASSIUM [Concomitant]
  9. CARVEDILOL [Concomitant]
  10. ISOSORBIDE DINITRATE [Concomitant]

REACTIONS (7)
  - COUGH [None]
  - CREPITATIONS [None]
  - FLUID OVERLOAD [None]
  - LOCALISED OEDEMA [None]
  - MALAISE [None]
  - OEDEMA PERIPHERAL [None]
  - WHEEZING [None]
